FAERS Safety Report 14848026 (Version 2)
Quarter: 2018Q2

REPORT INFORMATION
  Report Type: Spontaneous
  Country: PT (occurrence: PT)
  Receive Date: 20180504
  Receipt Date: 20180611
  Transmission Date: 20180711
  Serious: Yes (Hospitalization, Other)
  Sender: FDA-Public Use
  Company Number: PT-SA-2018SA115415

PATIENT
  Age: 50 Year
  Sex: Female

DRUGS (3)
  1. LEPICORTINOLO [PREDNISOLONE] [Concomitant]
     Dosage: 60 MG, QD
     Route: 048
     Dates: start: 20180419
  2. AUBAGIO [Suspect]
     Active Substance: TERIFLUNOMIDE
     Indication: MULTIPLE SCLEROSIS
     Dosage: 14 MG,QD
     Route: 048
     Dates: start: 201703, end: 20180419
  3. LEPICORTINOLO [PREDNISOLONE] [Concomitant]
     Dosage: 40 MG,  QD
     Route: 048
     Dates: start: 20180514

REACTIONS (6)
  - Autoimmune haemolytic anaemia [Recovering/Resolving]
  - Thrombocytosis [Recovering/Resolving]
  - Red blood cell sedimentation rate increased [Recovering/Resolving]
  - Asthenia [Recovering/Resolving]
  - Hyperhidrosis [Recovering/Resolving]
  - Weight decreased [Recovering/Resolving]

NARRATIVE: CASE EVENT DATE: 2017
